FAERS Safety Report 17896544 (Version 2)
Quarter: 2020Q4

REPORT INFORMATION
  Report Type: Report from Study
  Country: CO (occurrence: CO)
  Receive Date: 20200615
  Receipt Date: 20201014
  Transmission Date: 20210113
  Serious: Yes (Other)
  Sender: FDA-Public Use
  Company Number: NVSC2020CO087927

PATIENT
  Sex: Female

DRUGS (2)
  1. TAFINLAR [Suspect]
     Active Substance: DABRAFENIB MESYLATE
     Indication: METASTATIC MALIGNANT MELANOMA
     Dosage: UNK  (REPORTED FORMULATION: TABLET)
     Route: 048
  2. MEKINIST [Suspect]
     Active Substance: TRAMETINIB DIMETHYL SULFOXIDE
     Indication: METASTATIC MALIGNANT MELANOMA
     Dosage: UNK (REPORTED FORMULATION: TABLET)
     Route: 048

REACTIONS (14)
  - Neoplasm [Recovered/Resolved]
  - Pigmentation disorder [Unknown]
  - Memory impairment [Unknown]
  - Pain [Unknown]
  - Chills [Unknown]
  - Acne [Unknown]
  - Immune system disorder [Unknown]
  - Cerebrovascular accident [Unknown]
  - Feeling abnormal [Unknown]
  - Mobility decreased [Unknown]
  - Paraesthesia [Unknown]
  - Arthralgia [Unknown]
  - Dizziness [Unknown]
  - Illness [Unknown]
